FAERS Safety Report 5241726-X (Version None)
Quarter: 2007Q1

REPORT INFORMATION
  Report Type: 
  Country: None (occurrence: None)
  Receive Date: 20070220
  Receipt Date: 20070209
  Transmission Date: 20070707
  Serious: Yes (Hospitalization, Other)
  Sender: FDA-Public Use
  Company Number: US-ELI_LILLY_AND_COMPANY-US200611004008

PATIENT
  Age: 82 Year
  Sex: Male

DRUGS (15)
  1. FORTEO [Suspect]
     Indication: OSTEOPOROSIS
     Dosage: UNK, UNK
     Dates: start: 20050101
  2. ALBUTEROL [Concomitant]
     Dosage: UNK UNK, UNKNOWN
  3. ASPIRIN [Concomitant]
     Dosage: UNK UNK, UNKNOWN
  4. B12 ANKERMANN [Concomitant]
     Dosage: UNK UNK, UNKNOWN
  5. CENTRUM SILVER [Concomitant]
     Dosage: UNK UNK, UNKNOWN
  6. PLAVIX                                  /UNK/ [Concomitant]
     Dosage: UNK UNK, UNKNOWN
  7. ISOSORBIDE [Concomitant]
     Dosage: UNK UNK, UNKNOWN
  8. LEXAPRO                                 /USA/ [Concomitant]
     Dosage: UNK UNK, UNKNOWN
  9. OMEPRAZOLE [Concomitant]
     Dosage: UNK UNK, UNKNOWN
  10. PROSCAR                                 /USA/ [Concomitant]
     Dosage: UNK UNK, UNKNOWN
  11. SIMVASTATIN [Concomitant]
     Dosage: UNK UNK, UNKNOWN
  12. SPIRIVA [Concomitant]
     Dosage: UNK UNK, UNKNOWN
  13. SYNTHROID [Concomitant]
     Dosage: UNK UNK, UNKNOWN
  14. VITAMIN D [Concomitant]
     Dosage: UNK UNK, WEEKLY (1/W)
  15. MESONEX [Concomitant]
     Dosage: UNK UNK, 2/D

REACTIONS (5)
  - CHEST PAIN [None]
  - CORONARY ARTERY OCCLUSION [None]
  - DYSPNOEA [None]
  - MYOCARDIAL INFARCTION [None]
  - MYOCARDIAL ISCHAEMIA [None]
